FAERS Safety Report 5198770-0 (Version None)
Quarter: 2007Q1

REPORT INFORMATION
  Report Type: 
  Country: None (occurrence: None)
  Receive Date: 20070104
  Receipt Date: 20070102
  Transmission Date: 20070707
  Serious: Yes (Hospitalization)
  Sender: FDA-Public Use
  Company Number: FR-GLAXOSMITHKLINE-B0452125A

PATIENT
  Age: 78 Year
  Sex: Female

DRUGS (7)
  1. AUGMENTIN '125' [Suspect]
     Dosage: 3G PER DAY
     Route: 048
     Dates: start: 20060919, end: 20061003
  2. CORTANCYL [Concomitant]
     Route: 065
  3. FOSAMAX [Concomitant]
     Route: 065
  4. CACIT D3 [Concomitant]
     Route: 065
  5. CONTRAMAL [Concomitant]
     Route: 065
  6. DAFALGAN [Concomitant]
     Route: 065
  7. NEXIUM [Concomitant]
     Route: 065

REACTIONS (9)
  - ALANINE AMINOTRANSFERASE INCREASED [None]
  - BLOOD ALKALINE PHOSPHATASE INCREASED [None]
  - CHOLECYSTITIS [None]
  - GALLBLADDER DISORDER [None]
  - GAMMA-GLUTAMYLTRANSFERASE INCREASED [None]
  - HEPATITIS CHOLESTATIC [None]
  - JAUNDICE [None]
  - LEUKOCYTOSIS [None]
  - PYREXIA [None]
